FAERS Safety Report 7169945-6 (Version None)
Quarter: 2010Q4

REPORT INFORMATION
  Report Type: 
  Country: None (occurrence: None)
  Receive Date: 20101214
  Receipt Date: 20101214
  Transmission Date: 20110411
  Serious: Yes (Hospitalization)
  Sender: FDA-Public Use
  Company Number: None

PATIENT
  Age: 55 Year
  Sex: Male
  Weight: 99 kg

DRUGS (2)
  1. ENOXAPARIN SODIUM [Suspect]
     Indication: DEEP VEIN THROMBOSIS
     Dosage: 100 MG BID SQ
     Route: 058
     Dates: start: 20100505, end: 20100531
  2. WARFARIN [Suspect]
     Indication: DEEP VEIN THROMBOSIS
     Dosage: EVERY DAY PO
     Route: 048
     Dates: start: 20100505, end: 20100531

REACTIONS (6)
  - ANAEMIA [None]
  - FALL [None]
  - HAEMARTHROSIS [None]
  - HAEMATOCHEZIA [None]
  - INJECTION SITE HAEMORRHAGE [None]
  - PURPURA [None]
